FAERS Safety Report 18488865 (Version 2)
Quarter: 2020Q4

REPORT INFORMATION
  Report Type: Other
  Country: CO (occurrence: CO)
  Receive Date: 20201111
  Receipt Date: 20201222
  Transmission Date: 20210114
  Serious: Yes (Other)
  Sender: FDA-Public Use
  Company Number: CO-ROCHE-2710741

PATIENT
  Age: 58 Year
  Sex: Female

DRUGS (3)
  1. XOLAIR [Suspect]
     Active Substance: OMALIZUMAB
     Route: 058
     Dates: start: 202008
  2. XOLAIR [Suspect]
     Active Substance: OMALIZUMAB
     Route: 058
     Dates: start: 202009, end: 20201022
  3. XOLAIR [Suspect]
     Active Substance: OMALIZUMAB
     Indication: URTICARIA
     Route: 058
     Dates: start: 20200729

REACTIONS (11)
  - Nausea [Recovered/Resolved]
  - Feeling hot [Unknown]
  - Vomiting [Recovered/Resolved]
  - Decreased appetite [Recovered/Resolved]
  - Pruritus [Not Recovered/Not Resolved]
  - Dizziness [Recovered/Resolved]
  - Urticaria [Not Recovered/Not Resolved]
  - Eye inflammation [Recovered/Resolved]
  - Stomatitis [Recovered/Resolved]
  - Skin burning sensation [Not Recovered/Not Resolved]
  - Alopecia [Recovered/Resolved]

NARRATIVE: CASE EVENT DATE: 20200729
